FAERS Safety Report 7775254-4 (Version None)
Quarter: 2011Q3

REPORT INFORMATION
  Report Type: 
  Country: None (occurrence: None)
  Receive Date: 20110923
  Receipt Date: 20110726
  Transmission Date: 20111222
  Serious: No
  Sender: FDA-Public Use
  Company Number: US-BRISTOL-MYERS SQUIBB COMPANY-15929698

PATIENT
  Age: 83 Year
  Sex: Male

DRUGS (2)
  1. MEGACE [Suspect]
  2. NEXAVAR [Suspect]
     Dosage: NEXAVAR 200MG TABLET
     Route: 048
     Dates: start: 20110715

REACTIONS (2)
  - DIZZINESS [None]
  - HYPERGLYCAEMIA [None]
